FAERS Safety Report 24310958 (Version 2)
Quarter: 2024Q4

REPORT INFORMATION
  Report Type: Spontaneous
  Country: AU (occurrence: AU)
  Receive Date: 20240912
  Receipt Date: 20241219
  Transmission Date: 20250115
  Serious: Yes (Hospitalization, Other)
  Sender: RANBAXY
  Company Number: AU-SUN PHARMACEUTICAL INDUSTRIES LTD-2024R1-467339

PATIENT
  Age: 82 Year
  Sex: Female

DRUGS (3)
  1. LENALIDOMIDE [Suspect]
     Active Substance: LENALIDOMIDE
     Indication: Plasma cell myeloma
     Dosage: UNK
     Route: 065
     Dates: start: 20220303
  2. DEXAMETHASONE [Suspect]
     Active Substance: DEXAMETHASONE
     Indication: Plasma cell myeloma
     Dosage: UNK
     Route: 065
     Dates: start: 20220303
  3. ISATUXIMAB [Suspect]
     Active Substance: ISATUXIMAB
     Indication: Plasma cell myeloma
     Dosage: UNK (10 MILLIGRAM)
     Route: 065
     Dates: start: 20240405

REACTIONS (1)
  - Infective exacerbation of chronic obstructive airways disease [Recovered/Resolved]

NARRATIVE: CASE EVENT DATE: 20240417
